FAERS Safety Report 12335472 (Version 1)
Quarter: 2016Q2

REPORT INFORMATION
  Report Type: Spontaneous
  Country: TW (occurrence: TW)
  Receive Date: 20160504
  Receipt Date: 20160504
  Transmission Date: 20160815
  Serious: Yes (Hospitalization)
  Sender: FDA-Public Use
  Company Number: TW-BRISTOL-MYERS SQUIBB COMPANY-BMS-2016-031721

PATIENT
  Sex: Female

DRUGS (2)
  1. DAKLINZA [Suspect]
     Active Substance: DACLATASVIR
     Indication: HEPATITIS C
     Route: 065
  2. SUNVEPRA [Suspect]
     Active Substance: ASUNAPREVIR
     Indication: HEPATITIS C
     Dosage: N/A
     Route: 048

REACTIONS (2)
  - Blood bilirubin increased [Unknown]
  - Rash [Unknown]
